FAERS Safety Report 10793600 (Version 1)
Quarter: 2015Q1

REPORT INFORMATION
  Report Type: Spontaneous
  Country: US (occurrence: None)
  Receive Date: 20150212
  Receipt Date: 20150212
  Transmission Date: 20150721
  Serious: Yes (Death)
  Sender: FDA-Public Use
  Company Number: None

PATIENT
  Age: 85 Year
  Sex: Female
  Weight: 44.45 kg

DRUGS (1)
  1. SEROQUEL [Suspect]
     Active Substance: QUETIAPINE FUMARATE
     Indication: PATIENT RESTRAINT
     Dosage: 1 PILL ONCE DAILY TAKEN BY MOUTH
     Route: 048
     Dates: start: 20141124, end: 20141127

REACTIONS (4)
  - Drug dispensing error [None]
  - Wrong drug administered [None]
  - Cerebrovascular accident [None]
  - Unresponsive to stimuli [None]

NARRATIVE: CASE EVENT DATE: 20141123
